FAERS Safety Report 5708343-6 (Version None)
Quarter: 2008Q2

REPORT INFORMATION
  Report Type: 
  Country: None (occurrence: None)
  Receive Date: 20080417
  Receipt Date: 20080407
  Transmission Date: 20081010
  Serious: Yes (Hospitalization)
  Sender: FDA-Public Use
  Company Number: JP-ASTRAZENECA-2008SE01924

PATIENT
  Age: 71 Year
  Sex: Male

DRUGS (5)
  1. BLOPRESS [Suspect]
     Indication: HYPERTENSION
     Route: 048
     Dates: start: 20080403
  2. TAKEDA KANPO LAXATIVE [Suspect]
     Route: 048
     Dates: start: 20080314, end: 20080314
  3. TAKEDA KANPO LAXATIVE [Suspect]
     Route: 048
     Dates: start: 20080316, end: 20080317
  4. TAKEDA KANPO LAXATIVE [Suspect]
     Route: 048
     Dates: start: 20080401, end: 20080403
  5. DETANTOL [Suspect]
     Route: 048
     Dates: start: 20080403

REACTIONS (3)
  - BLOOD PRESSURE DECREASED [None]
  - PYREXIA [None]
  - RASH GENERALISED [None]
